FAERS Safety Report 9482676 (Version 1)
Quarter: 2013Q3

REPORT INFORMATION
  Report Type: Report from Study
  Country: CA (occurrence: CA)
  Receive Date: 20130828
  Receipt Date: 20130828
  Transmission Date: 20140515
  Serious: Yes (Hospitalization)
  Sender: FDA-Public Use
  Company Number: CA-JNJFOC-20130814060

PATIENT
  Sex: Male
  Weight: 66 kg

DRUGS (4)
  1. REMICADE [Suspect]
     Indication: CROHN^S DISEASE
     Dosage: 52 WEEKS
     Route: 042
     Dates: start: 2010
  2. FENTANYL [Concomitant]
     Dosage: 100MCG/HR, CHANGED ONCE IN 3 DAYS.
     Route: 061
  3. ZOPICLONE [Concomitant]
     Dosage: EVERYDAY AT HOURS OF SLEEP.
     Route: 048
  4. CYMBALTA [Concomitant]
     Dosage: DAILY
     Route: 048

REACTIONS (2)
  - Crohn^s disease [Recovered/Resolved]
  - Haematemesis [Recovered/Resolved]
